FAERS Safety Report 4650828-8 (Version None)
Quarter: 2005Q2

REPORT INFORMATION
  Report Type: 
  Country: None (occurrence: None)
  Receive Date: 20050429
  Receipt Date: 20050429
  Transmission Date: 20051028
  Serious: Yes (Hospitalization)
  Sender: FDA-Public Use
  Company Number: None

PATIENT
  Age: 49 Year
  Sex: Male
  Weight: 95.709 kg

DRUGS (18)
  1. CARBOPLATIN [Suspect]
     Indication: OESOPHAGEAL CARCINOMA
     Dosage: 310 MG IV WKLY X 6
     Route: 042
     Dates: start: 20050315
  2. CARBOPLATIN [Suspect]
     Indication: OESOPHAGEAL CARCINOMA
     Dosage: 310 MG IV WKLY X 6
     Route: 042
     Dates: start: 20050321
  3. CARBOPLATIN [Suspect]
     Indication: OESOPHAGEAL CARCINOMA
     Dosage: 310 MG IV WKLY X 6
     Route: 042
     Dates: start: 20050328
  4. CARBOPLATIN [Suspect]
     Indication: OESOPHAGEAL CARCINOMA
     Dosage: 310 MG IV WKLY X 6
     Route: 042
     Dates: start: 20050404
  5. CARBOPLATIN [Suspect]
     Indication: OESOPHAGEAL CARCINOMA
     Dosage: 310 MG IV WKLY X 6
     Route: 042
     Dates: start: 20050411
  6. CARBOPLATIN [Suspect]
     Indication: OESOPHAGEAL CARCINOMA
     Dosage: 310 MG IV WKLY X 6
     Route: 042
     Dates: start: 20050418
  7. CETUXIMAB 250 MG/M2 [Suspect]
     Indication: OESOPHAGEAL CARCINOMA
     Dosage: 500 MG IV WKLY X 6
     Route: 042
     Dates: start: 20050315
  8. CETUXIMAB 250 MG/M2 [Suspect]
     Indication: OESOPHAGEAL CARCINOMA
     Dosage: 500 MG IV WKLY X 6
     Route: 042
     Dates: start: 20050321
  9. CETUXIMAB 250 MG/M2 [Suspect]
     Indication: OESOPHAGEAL CARCINOMA
     Dosage: 500 MG IV WKLY X 6
     Route: 042
     Dates: start: 20050328
  10. CETUXIMAB 250 MG/M2 [Suspect]
     Indication: OESOPHAGEAL CARCINOMA
     Dosage: 500 MG IV WKLY X 6
     Route: 042
     Dates: start: 20050404
  11. CETUXIMAB 250 MG/M2 [Suspect]
     Indication: OESOPHAGEAL CARCINOMA
     Dosage: 500 MG IV WKLY X 6
     Route: 042
     Dates: start: 20050411
  12. CETUXIMAB 250 MG/M2 [Suspect]
     Indication: OESOPHAGEAL CARCINOMA
     Dosage: 500 MG IV WKLY X 6
     Route: 042
     Dates: start: 20050418
  13. TAXOL [Suspect]
     Indication: OESOPHAGEAL CARCINOMA
     Dosage: 160 MG IV WKLY X 6
     Route: 042
     Dates: start: 20050315
  14. TAXOL [Suspect]
     Indication: OESOPHAGEAL CARCINOMA
     Dosage: 160 MG IV WKLY X 6
     Route: 042
     Dates: start: 20050321
  15. TAXOL [Suspect]
     Indication: OESOPHAGEAL CARCINOMA
     Dosage: 160 MG IV WKLY X 6
     Route: 042
     Dates: start: 20050328
  16. TAXOL [Suspect]
     Indication: OESOPHAGEAL CARCINOMA
     Dosage: 160 MG IV WKLY X 6
     Route: 042
     Dates: start: 20050404
  17. TAXOL [Suspect]
     Indication: OESOPHAGEAL CARCINOMA
     Dosage: 160 MG IV WKLY X 6
     Route: 042
     Dates: start: 20050411
  18. TAXOL [Suspect]
     Indication: OESOPHAGEAL CARCINOMA
     Dosage: 160 MG IV WKLY X 6
     Route: 042
     Dates: start: 20050418

REACTIONS (5)
  - BODY TEMPERATURE INCREASED [None]
  - COUGH [None]
  - NAUSEA [None]
  - OESOPHAGEAL PAIN [None]
  - OESOPHAGITIS [None]
